FAERS Safety Report 9180007 (Version 1)
Quarter: 2012Q4

REPORT INFORMATION
  Report Type: 
  Country: MX (occurrence: MX)
  Receive Date: 20121029
  Receipt Date: 20121029
  Transmission Date: 20130627
  Serious: Yes (Death)
  Sender: FDA-Public Use
  Company Number: PHHY2012MX097234

PATIENT
  Age: 84 None
  Sex: Female

DRUGS (1)
  1. EXFORGE HCT [Suspect]
     Indication: DIABETES MELLITUS
     Dosage: 1 DF (320/10/25mg) daily
     Dates: start: 20120514

REACTIONS (1)
  - Death [Fatal]
